FAERS Safety Report 6825521-3 (Version None)
Quarter: 2010Q3

REPORT INFORMATION
  Report Type: 
  Country: None (occurrence: None)
  Receive Date: 20100708
  Receipt Date: 20061121
  Transmission Date: 20110219
  Serious: No
  Sender: FDA-Public Use
  Company Number: US-PFIZER INC-2006147674

PATIENT
  Sex: Female
  Weight: 65.77 kg

DRUGS (13)
  1. CHANTIX [Suspect]
     Dates: start: 20061112
  2. LEVOTHYROXINE SODIUM [Concomitant]
  3. NORVASC [Concomitant]
  4. LIPITOR [Concomitant]
  5. DICLOFENAC SODIUM [Concomitant]
     Indication: OSTEOARTHRITIS
  6. DICLOFENAC SODIUM [Concomitant]
     Indication: OSTEOPOROSIS
  7. TRAMADOL [Concomitant]
  8. NEURONTIN [Concomitant]
  9. NITROSTAT [Concomitant]
  10. ALBUTEROL [Concomitant]
  11. ADVAIR DISKUS 100/50 [Concomitant]
  12. LORTAB [Concomitant]
  13. ALL OTHER THERAPEUTIC PRODUCTS [Concomitant]

REACTIONS (2)
  - NAUSEA [None]
  - VOMITING [None]
